FAERS Safety Report 14951035 (Version 3)
Quarter: 2018Q3

REPORT INFORMATION
  Report Type: Report from Study
  Country: US (occurrence: US)
  Receive Date: 20180530
  Receipt Date: 20180806
  Transmission Date: 20181010
  Serious: Yes (Hospitalization, Other)
  Sender: FDA-Public Use
  Company Number: US-GILEAD-2018-0341173

PATIENT
  Age: 27 Year
  Sex: Male
  Weight: 57.8 kg

DRUGS (6)
  1. SILDENAFIL. [Concomitant]
     Active Substance: SILDENAFIL
  2. ADCIRCA [Concomitant]
     Active Substance: TADALAFIL
  3. DIGOXIN. [Concomitant]
     Active Substance: DIGOXIN
  4. AMBRISENTAN [Suspect]
     Active Substance: AMBRISENTAN
     Indication: PRODUCT USED FOR UNKNOWN INDICATION
     Dosage: 10 MG, QD
     Route: 065
     Dates: start: 20120220
  5. ELIQUIS [Concomitant]
     Active Substance: APIXABAN
  6. TYVASO [Concomitant]
     Active Substance: TREPROSTINIL

REACTIONS (6)
  - Heart rate increased [Unknown]
  - Weight decreased [Unknown]
  - Fatigue [Unknown]
  - Ill-defined disorder [Unknown]
  - Fluid retention [Unknown]
  - Atrial fibrillation [Unknown]
